FAERS Safety Report 17479034 (Version 2)
Quarter: 2020Q3

REPORT INFORMATION
  Report Type: Spontaneous
  Country: US (occurrence: US)
  Receive Date: 20200229
  Receipt Date: 20200722
  Transmission Date: 20201105
  Serious: Yes (Disabling, Other)
  Sender: FDA-Public Use
  Company Number: NVSC2020US051835

PATIENT
  Age: 89 Year
  Sex: Female

DRUGS (5)
  1. BEOVU [Suspect]
     Active Substance: BROLUCIZUMAB-DBLL
     Indication: NEOVASCULAR AGE-RELATED MACULAR DEGENERATION
     Dosage: UNK
     Route: 047
     Dates: start: 20191202
  2. AVASTIN [Suspect]
     Active Substance: BEVACIZUMAB
     Indication: PRODUCT USED FOR UNKNOWN INDICATION
     Dosage: UNK (14 INJECTIONS)
     Route: 031
  3. BEOVU [Suspect]
     Active Substance: BROLUCIZUMAB-DBLL
     Dosage: 6 MG, QD
     Route: 047
     Dates: start: 20200210, end: 20200210
  4. BEOVU [Suspect]
     Active Substance: BROLUCIZUMAB-DBLL
     Dosage: UNK
     Route: 047
     Dates: start: 20191230
  5. EYLEA [Suspect]
     Active Substance: AFLIBERCEPT
     Indication: PRODUCT USED FOR UNKNOWN INDICATION
     Dosage: UNK (11 INJECTIONS)
     Route: 031

REACTIONS (6)
  - Uveitis [Not Recovered/Not Resolved]
  - Vitreous floaters [Unknown]
  - Vitritis [Unknown]
  - Anterior chamber fibrin [Unknown]
  - Anterior chamber cell [Unknown]
  - Vitreous haze [Unknown]

NARRATIVE: CASE EVENT DATE: 20200214
